FAERS Safety Report 4974252-3 (Version None)
Quarter: 2006Q2

REPORT INFORMATION
  Report Type: 
  Country: None (occurrence: None)
  Receive Date: 20060417
  Receipt Date: 20050928
  Transmission Date: 20061013
  Serious: Yes (Hospitalization)
  Sender: FDA-Public Use
  Company Number: US-MERCK-0509USA04542

PATIENT
  Age: 67 Year
  Sex: Male
  Weight: 100 kg

DRUGS (1)
  1. VIOXX [Suspect]
     Indication: POLYARTHRITIS
     Route: 048
     Dates: start: 20000501

REACTIONS (8)
  - ANGINA UNSTABLE [None]
  - BLOOD CHOLESTEROL INCREASED [None]
  - CANDIDIASIS [None]
  - CORONARY ARTERY DISEASE [None]
  - GLOSSITIS [None]
  - PAIN IN EXTREMITY [None]
  - PAIN IN JAW [None]
  - PHARYNGITIS [None]
